FAERS Safety Report 10762237 (Version 1)
Quarter: 2015Q1

REPORT INFORMATION
  Report Type: Spontaneous
  Country: US (occurrence: None)
  Receive Date: 20150129
  Receipt Date: 20150129
  Transmission Date: 20150721
  Serious: Yes (Hospitalization, Other)
  Sender: FDA-Public Use
  Company Number: 120044

PATIENT
  Age: 44 Year
  Sex: Male

DRUGS (3)
  1. COPAXONE (GLATIRAMER ACETATE) INJECTION [Concomitant]
  2. KEPPRA [Suspect]
     Active Substance: LEVETIRACETAM
     Indication: SEIZURE
  3. CLONAZEPAM (CLONAZEPAM) [Suspect]
     Active Substance: CLONAZEPAM
     Indication: SEIZURE

REACTIONS (1)
  - Seizure [None]

NARRATIVE: CASE EVENT DATE: 20140328
